FAERS Safety Report 5280688-6 (Version None)
Quarter: 2007Q1

REPORT INFORMATION
  Report Type: 
  Country: None (occurrence: None)
  Receive Date: 20061221
  Receipt Date: 20060908
  Transmission Date: 20070707
  Serious: No
  Sender: FDA-Public Use
  Company Number: US-CVT-061858

PATIENT
  Age: 69 Year
  Sex: Male
  Weight: 90.2 kg

DRUGS (1)
  1. RANEXA [Suspect]
     Indication: ANGINA PECTORIS
     Dosage: 500 MG, ORAL
     Route: 048
     Dates: start: 20060801, end: 20060801

REACTIONS (1)
  - RASH [None]
